FAERS Safety Report 8777878 (Version 1)
Quarter: 2012Q4

REPORT INFORMATION
  Report Type: Report from Study
  Country: DE (occurrence: DE)
  Receive Date: 20120911
  Receipt Date: 20120911
  Transmission Date: 20130627
  Serious: No
  Sender: FDA-Public Use
  Company Number: PHHY2012DE078758

PATIENT

DRUGS (11)
  1. AMN107 [Suspect]
     Indication: CHRONIC MYELOID LEUKAEMIA
     Dosage: 300 mg per day
     Route: 048
     Dates: start: 20120327, end: 20120417
  2. AMN107 [Suspect]
     Dosage: 300 mg per day
     Route: 048
     Dates: start: 20120418, end: 20120426
  3. AMN107 [Suspect]
     Dosage: 600 mg per day
     Route: 048
     Dates: start: 20120427, end: 20120504
  4. TOREM [Concomitant]
  5. OXYGESIC [Concomitant]
  6. ATACAND [Concomitant]
     Dosage: UNK
     Dates: start: 20120406
  7. NOVALGIN                                /SCH/ [Concomitant]
     Dosage: UNK
  8. AMITRIPTYLINE [Concomitant]
  9. KALINOR P REK [Concomitant]
  10. SYREA [Concomitant]
     Dosage: UNK
     Dates: start: 20120302, end: 20120720
  11. VIGANTOLETTEN ^BAYER^ [Concomitant]

REACTIONS (2)
  - Dyspnoea [Not Recovered/Not Resolved]
  - Oedema peripheral [Recovered/Resolved]
